FAERS Safety Report 17963674 (Version 2)
Quarter: 2020Q3

REPORT INFORMATION
  Report Type: Report from Study
  Country: CA (occurrence: CA)
  Receive Date: 20200630
  Receipt Date: 20200724
  Transmission Date: 20201103
  Serious: Yes (Hospitalization)
  Sender: FDA-Public Use
  Company Number: CA-GLAXOSMITHKLINE-CA2020AMR109226

PATIENT
  Sex: Female

DRUGS (5)
  1. SINGULAIR [Suspect]
     Active Substance: MONTELUKAST SODIUM
     Indication: PRODUCT USED FOR UNKNOWN INDICATION
     Dosage: UNK
  2. SALBUTAMOL SULPHATE [Suspect]
     Active Substance: ALBUTEROL SULFATE
     Indication: ASTHMA
     Dosage: 100 MG, Z (MONTHLY)
  3. PREDNISONE. [Suspect]
     Active Substance: PREDNISONE
     Indication: PRODUCT USED FOR UNKNOWN INDICATION
     Dosage: 10 MG, QD
  4. ALVESCO [Suspect]
     Active Substance: CICLESONIDE
     Indication: PRODUCT USED FOR UNKNOWN INDICATION
     Dosage: UNK
  5. SYMBICORT [Suspect]
     Active Substance: BUDESONIDE\FORMOTEROL FUMARATE DIHYDRATE
     Indication: PRODUCT USED FOR UNKNOWN INDICATION
     Dosage: UNK,2 TO 4, BID

REACTIONS (17)
  - Loss of personal independence in daily activities [Unknown]
  - Dyspnoea [Unknown]
  - General physical health deterioration [Unknown]
  - Emphysema [Unknown]
  - Quality of life decreased [Unknown]
  - Hospitalisation [Unknown]
  - Haematoma [Unknown]
  - Asthma [Unknown]
  - Wheezing [Unknown]
  - Forced expiratory volume [Unknown]
  - Eosinophil count increased [Unknown]
  - Breath sounds abnormal [Unknown]
  - Sleep disorder due to a general medical condition [Unknown]
  - Disease complication [Unknown]
  - Osteoporosis [Unknown]
  - Weight increased [Unknown]
  - Skin fragility [Unknown]
